FAERS Safety Report 7080668-4 (Version None)
Quarter: 2010Q4

REPORT INFORMATION
  Report Type: 
  Country: None (occurrence: None)
  Receive Date: 20101103
  Receipt Date: 20101025
  Transmission Date: 20110411
  Serious: Yes (Hospitalization)
  Sender: FDA-Public Use
  Company Number: FR-ASTRAZENECA-2010SE51287

PATIENT
  Age: 19257 Day
  Sex: Male

DRUGS (14)
  1. ATACAND [Suspect]
     Route: 048
     Dates: start: 20100811, end: 20100816
  2. CIPROFLOXACINE ARROW [Suspect]
     Route: 048
     Dates: start: 20100816, end: 20100816
  3. GLUCOPHAGE [Suspect]
     Route: 048
     Dates: end: 20100816
  4. ATARAX [Concomitant]
  5. AMLODIPINE [Concomitant]
  6. LANTUS [Concomitant]
  7. TAHOR [Concomitant]
  8. ACETAMINOPHEN [Concomitant]
  9. LOVENOX [Concomitant]
  10. MORPHINE [Concomitant]
  11. KARDEGIC [Concomitant]
  12. LIDOCAINE-PROLOCAINE AGUETTAN [Concomitant]
  13. PENICILLIN [Concomitant]
  14. COLCHICINE [Concomitant]

REACTIONS (3)
  - GOUT [None]
  - HYPERURICAEMIA [None]
  - RENAL FAILURE [None]
